FAERS Safety Report 8449392-7 (Version None)
Quarter: 2012Q2

REPORT INFORMATION
  Report Type: 
  Country: None (occurrence: None)
  Receive Date: 20120619
  Receipt Date: 20120612
  Transmission Date: 20120825
  Serious: Yes (Hospitalization)
  Sender: FDA-Public Use
  Company Number: US-ROCHE-GNE321118

PATIENT
  Age: 12 Month
  Sex: Male

DRUGS (1)
  1. OMALIZUMAB [Suspect]
     Indication: ASTHMA
     Dosage: UNK
     Route: 064

REACTIONS (4)
  - PHARYNGITIS STREPTOCOCCAL [None]
  - MATERNAL EXPOSURE TIMING UNSPECIFIED [None]
  - FAILURE TO THRIVE [None]
  - EAR INFECTION [None]
